FAERS Safety Report 5751783-X (Version None)
Quarter: 2008Q2

REPORT INFORMATION
  Report Type: 
  Country: None (occurrence: None)
  Receive Date: 20080527
  Receipt Date: 20080510
  Transmission Date: 20081010
  Serious: Yes (Hospitalization)
  Sender: FDA-Public Use
  Company Number: 234422J08USA

PATIENT
  Age: 69 Year
  Sex: Female

DRUGS (2)
  1. REBIF [Suspect]
     Indication: MULTIPLE SCLEROSIS
     Dosage: 44 MCG, 3 IN 1 WEEKS
  2. PANTOPRAZOLE SODIUM [Concomitant]

REACTIONS (2)
  - FULL BLOOD COUNT DECREASED [None]
  - MYOCARDIAL INFARCTION [None]
